FAERS Safety Report 4342282-0 (Version None)
Quarter: 2004Q2

REPORT INFORMATION
  Report Type: 
  Country: None (occurrence: None)
  Receive Date: 20040415
  Receipt Date: 20040401
  Transmission Date: 20050107
  Serious: Yes (Life-Threatening, Hospitalization)
  Sender: FDA-Public Use
  Company Number: 02100-JPN-04-0064

PATIENT
  Age: 73 Year
  Sex: Male

DRUGS (10)
  1. CILOSTAZOL [Suspect]
     Indication: VERTEBROBASILAR INSUFFICIENCY
     Dosage: 100 MG ORAL
     Route: 048
     Dates: start: 20040303, end: 20040315
  2. ATORVASTATIN [Concomitant]
  3. PILSICAINIDE HYDROCHLORIDE [Concomitant]
  4. METFORMNI HYDROCHLORIDE [Concomitant]
  5. NAFTOPIDIL [Concomitant]
  6. ENALAPRIL MALEATE [Concomitant]
  7. METILIDIGOXIN [Concomitant]
  8. VALETHAMATE BROMIDE [Concomitant]
  9. CETIRIZINE HCL [Concomitant]
  10. VOGLIBOSE [Concomitant]

REACTIONS (5)
  - ANAEMIA [None]
  - BLOOD PRESSURE DECREASED [None]
  - GASTRIC ULCER HAEMORRHAGE [None]
  - HELICOBACTER INFECTION [None]
  - HYPERTENSION [None]
